FAERS Safety Report 8878347 (Version 1)
Quarter: 2012Q4

REPORT INFORMATION
  Report Type: 
  Country: US (occurrence: US)
  Receive Date: 20121025
  Receipt Date: 20121025
  Transmission Date: 20130627
  Serious: No
  Sender: FDA-Public Use
  Company Number: US-AMGEN-USASP2012022570

PATIENT
  Age: 54 Year
  Sex: Female
  Weight: 70.3 kg

DRUGS (5)
  1. ENBREL [Suspect]
     Indication: PRODUCT USED FOR UNKNOWN INDICATION
     Dosage: 50 mg, qwk
     Route: 058
  2. LEVOTHYROXIN [Concomitant]
     Dosage: 100 mug, UNK
  3. METOPROLOL [Concomitant]
     Dosage: 200 mg, UNK
  4. CRESTOR [Concomitant]
     Dosage: 40 mg, UNK
  5. NABUMETONE [Concomitant]
     Dosage: 750 mg, UNK

REACTIONS (1)
  - Sinusitis [Unknown]
